FAERS Safety Report 9571869 (Version 1)
Quarter: 2013Q3

REPORT INFORMATION
  Report Type: Spontaneous
  Country: US (occurrence: None)
  Receive Date: 20130930
  Receipt Date: 20130930
  Transmission Date: 20140515
  Serious: No
  Sender: FDA-Public Use
  Company Number: None

PATIENT
  Age: 53 Year
  Sex: Female

DRUGS (2)
  1. XELODA [Suspect]
     Indication: BREAST CANCER METASTATIC
  2. ZOMETA [Suspect]
     Indication: BREAST CANCER METASTATIC

REACTIONS (3)
  - Osteonecrosis of jaw [None]
  - Glucose tolerance impaired [None]
  - Laboratory test abnormal [None]
